FAERS Safety Report 14297439 (Version 1)
Quarter: 2017Q4

REPORT INFORMATION
  Report Type: Spontaneous
  Country: US (occurrence: US)
  Receive Date: 20171218
  Receipt Date: 20171218
  Transmission Date: 20180321
  Serious: Yes (Hospitalization)
  Sender: FDA-Public Use
  Company Number: US-ELI_LILLY_AND_COMPANY-US201712003175

PATIENT
  Age: 79 Year
  Sex: Female

DRUGS (5)
  1. INSULIN GLARGINE [Concomitant]
     Active Substance: INSULIN GLARGINE
     Dosage: 10 U, BID
  2. HUMULIN R [Suspect]
     Active Substance: INSULIN HUMAN
     Dosage: UNK
     Route: 058
     Dates: start: 2016
  3. INSULIN GLARGINE [Concomitant]
     Active Substance: INSULIN GLARGINE
     Indication: DIABETES MELLITUS
     Dosage: UNK UNK, DAILY
     Dates: start: 2002
  4. HUMULIN R [Suspect]
     Active Substance: INSULIN HUMAN
     Indication: DIABETES MELLITUS
     Dosage: UNK UNK, UNKNOWN (DURING DAY)
     Route: 058
     Dates: start: 2002
  5. HUMULIN R [Suspect]
     Active Substance: INSULIN HUMAN
     Dosage: UNK UNK, PRN (SLIDING SCALE)
     Route: 058
     Dates: start: 20170406

REACTIONS (8)
  - Myocardial infarction [Recovered/Resolved]
  - Incorrect drug administration duration [Unknown]
  - Pneumonia [Recovered/Resolved]
  - Drug dose omission [Unknown]
  - Product storage error [Unknown]
  - Pain in extremity [Recovering/Resolving]
  - Cardiac disorder [Unknown]
  - Blood glucose increased [Unknown]

NARRATIVE: CASE EVENT DATE: 2016
